FAERS Safety Report 4729300-2 (Version None)
Quarter: 2005Q3

REPORT INFORMATION
  Report Type: 
  Country: None (occurrence: None)
  Receive Date: 20050729
  Receipt Date: 20040923
  Transmission Date: 20060218
  Serious: No
  Sender: FDA-Public Use
  Company Number: US-GLAXOSMITHKLINE-A0527108A

PATIENT
  Sex: Female

DRUGS (11)
  1. IMITREX [Suspect]
     Indication: MIGRAINE
     Dosage: 100MG PER DAY
     Route: 048
  2. BEXTRA [Concomitant]
  3. FORTEO [Concomitant]
  4. EVISTA [Concomitant]
  5. VICODIN [Concomitant]
  6. DARVOCET [Concomitant]
  7. LIPITOR [Concomitant]
  8. ARICEPT [Concomitant]
  9. LEVOXYL [Concomitant]
  10. INDERAL [Concomitant]
  11. DEPAKOTE [Concomitant]

REACTIONS (1)
  - MIGRAINE [None]
